FAERS Safety Report 8955548 (Version 1)
Quarter: 2012Q4

REPORT INFORMATION
  Report Type: 
  Country: DE (occurrence: DE)
  Receive Date: 20121210
  Receipt Date: 20121210
  Transmission Date: 20130627
  Serious: Yes (Hospitalization)
  Sender: FDA-Public Use
  Company Number: DE-RANBAXY-2012RR-62945

PATIENT
  Age: 73 Year
  Sex: Female
  Weight: 95 kg

DRUGS (2)
  1. TERBINAFINE [Suspect]
     Indication: PRODUCT USED FOR UNKNOWN INDICATION
     Dosage: 250 mg/day
     Route: 048
  2. IBUPROFEN [Suspect]
     Indication: VERTEBRAL FORAMINAL STENOSIS
     Dosage: 2400 mg/day
     Route: 048

REACTIONS (1)
  - Hepatitis cholestatic [Recovering/Resolving]
